FAERS Safety Report 22248277 (Version 9)
Quarter: 2023Q4

REPORT INFORMATION
  Report Type: Spontaneous
  Country: US (occurrence: US)
  Receive Date: 20230425
  Receipt Date: 20231108
  Transmission Date: 20240110
  Serious: No
  Sender: FDA-Public Use
  Company Number: US-GLAXOSMITHKLINE-US2023AMR059827

PATIENT
  Sex: Female

DRUGS (4)
  1. ZEJULA [Suspect]
     Active Substance: NIRAPARIB
     Indication: Malignant peritoneal neoplasm
     Dosage: 200 MG, QD
     Dates: start: 20230415
  2. ZEJULA [Suspect]
     Active Substance: NIRAPARIB
     Dosage: 200 MG, QD
  3. ZEJULA [Suspect]
     Active Substance: NIRAPARIB
     Dosage: 100 MG, QD
     Route: 048
  4. ZEJULA [Suspect]
     Active Substance: NIRAPARIB
     Indication: Malignant peritoneal neoplasm
     Dosage: 100 MG, QD

REACTIONS (13)
  - Fatigue [Recovering/Resolving]
  - Eye pruritus [Unknown]
  - Rhinorrhoea [Unknown]
  - Platelet count decreased [Unknown]
  - Blood test abnormal [Not Recovered/Not Resolved]
  - Heart rate increased [Unknown]
  - Platelet count abnormal [Unknown]
  - Carbohydrate antigen 125 increased [Unknown]
  - Influenza [Unknown]
  - Illness [Unknown]
  - Extra dose administered [Unknown]
  - Product dose omission issue [Unknown]
  - Incorrect product administration duration [Unknown]
